FAERS Safety Report 6787505 (Version 3)
Quarter: 2013Q3

REPORT INFORMATION
  Report Type: Spontaneous
  Country: US (occurrence: US)
  Receive Date: 20081015
  Receipt Date: 20130731
  Transmission Date: 20140515
  Serious: Yes (Other)
  Sender: FDA-Public Use
  Company Number: US-JNJFOC-20081001550

PATIENT
  Sex: Female
  Weight: 64 kg

DRUGS (2)
  1. REMICADE [Suspect]
     Indication: CROHN^S DISEASE
     Route: 042
     Dates: start: 2002, end: 2007
  2. PLAQUENIL [Concomitant]
     Indication: CROHN^S DISEASE

REACTIONS (1)
  - Non-Hodgkin^s lymphoma [Recovered/Resolved]
